FAERS Safety Report 9002953 (Version 1)
Quarter: 2013Q1

REPORT INFORMATION
  Report Type: Spontaneous
  Country: US (occurrence: US)
  Receive Date: 20130108
  Receipt Date: 20130108
  Transmission Date: 20140127
  Serious: Yes (Death)
  Sender: FDA-Public Use
  Company Number: US-ASTRAZENECA-2013SE01008

PATIENT
  Age: 31 Year
  Sex: Female

DRUGS (6)
  1. LISINOPRIL [Suspect]
  2. VERAPAMIL [Suspect]
  3. CARVEDILOL [Suspect]
  4. FUROSEMIDE [Suspect]
  5. LEVOTHYROXINE [Suspect]
  6. COCAINE [Suspect]

REACTIONS (2)
  - Completed suicide [Fatal]
  - Toxicity to various agents [Fatal]
